FAERS Safety Report 8188217-4 (Version None)
Quarter: 2012Q1

REPORT INFORMATION
  Report Type: 
  Country: None (occurrence: None)
  Receive Date: 20120306
  Receipt Date: 20120227
  Transmission Date: 20120608
  Serious: Yes (Hospitalization)
  Sender: FDA-Public Use
  Company Number: FR-ASTRAZENECA-2012SE14225

PATIENT
  Age: 26 Year
  Sex: Female

DRUGS (9)
  1. KETOPROFEN [Suspect]
     Indication: PAIN
     Route: 041
     Dates: start: 20120127, end: 20120127
  2. SUFENTANIL CITRATE [Suspect]
     Route: 042
     Dates: start: 20120127, end: 20120127
  3. DIPRIVAN [Suspect]
     Indication: ANAESTHESIA
     Route: 042
     Dates: start: 20120127, end: 20120127
  4. AMOXICILLIN [Suspect]
     Route: 048
     Dates: start: 20120127, end: 20120128
  5. ASCORBIC ACID [Suspect]
     Route: 048
     Dates: start: 20120127, end: 20120128
  6. ACETAMINOPHEN [Suspect]
     Dosage: 10 MG/ML
     Route: 042
     Dates: start: 20120127, end: 20120127
  7. OXYCODONE HCL [Suspect]
     Dosage: 10 MG/ML
     Route: 042
     Dates: start: 20120127, end: 20120127
  8. ACUPAN [Suspect]
     Route: 065
  9. ACETAMINOPHEN [Suspect]
     Indication: PAIN
     Route: 048
     Dates: start: 20120127, end: 20120128

REACTIONS (1)
  - CYTOLYTIC HEPATITIS [None]
